FAERS Safety Report 14741091 (Version 1)
Quarter: 2018Q2

REPORT INFORMATION
  Report Type: Spontaneous
  Country: US (occurrence: US)
  Receive Date: 20180410
  Receipt Date: 20180410
  Transmission Date: 20180711
  Serious: Yes (Other)
  Sender: FDA-Public Use
  Company Number: US-IPSEN BIOPHARMACEUTICALS, INC.-2018-05318

PATIENT
  Age: 49 Year
  Sex: Female

DRUGS (5)
  1. DYSPORT [Suspect]
     Active Substance: ABOBOTULINUMTOXINA
     Indication: SKIN WRINKLING
  2. DYSPORT [Suspect]
     Active Substance: ABOBOTULINUMTOXINA
     Indication: SKIN WRINKLING
  3. DYSPORT [Suspect]
     Active Substance: ABOBOTULINUMTOXINA
     Indication: OFF LABEL USE
  4. DYSPORT [Suspect]
     Active Substance: ABOBOTULINUMTOXINA
     Indication: SKIN WRINKLING
     Dosage: 85 UNITS
     Route: 030
     Dates: start: 20180312, end: 20180312
  5. DYSPORT [Suspect]
     Active Substance: ABOBOTULINUMTOXINA
     Indication: SKIN WRINKLING

REACTIONS (8)
  - Eye disorder [Not Recovered/Not Resolved]
  - Headache [Unknown]
  - Photophobia [Not Recovered/Not Resolved]
  - Off label use [Unknown]
  - Product preparation error [Unknown]
  - Vision blurred [Not Recovered/Not Resolved]
  - Cranial nerve disorder [Unknown]
  - Asthenopia [Unknown]

NARRATIVE: CASE EVENT DATE: 201803
